FAERS Safety Report 23588309 (Version 3)
Quarter: 2024Q2

REPORT INFORMATION
  Report Type: Spontaneous
  Country: US (occurrence: US)
  Receive Date: 20240302
  Receipt Date: 20240510
  Transmission Date: 20240715
  Serious: Yes (Life-Threatening, Other)
  Sender: FDA-Public Use
  Company Number: US-JNJFOC-20240264818

PATIENT
  Age: 85 Year
  Sex: Female
  Weight: 54 kg

DRUGS (11)
  1. TECVAYLI [Suspect]
     Active Substance: TECLISTAMAB-CQYV
     Indication: Plasma cell myeloma
     Dosage: 1ST TREATMENT DOSE OF STEP UP SCHEDULE?1ST DOSE
     Route: 058
     Dates: start: 20231017
  2. TECVAYLI [Suspect]
     Active Substance: TECLISTAMAB-CQYV
     Dosage: 2ND DOSE
     Route: 058
     Dates: start: 20231020
  3. TECVAYLI [Suspect]
     Active Substance: TECLISTAMAB-CQYV
     Dosage: 3RD DOSE
     Route: 058
     Dates: start: 20231023
  4. ACETAMINOPHEN [Concomitant]
     Active Substance: ACETAMINOPHEN
     Indication: Premedication
     Dosage: ROUTE: PO
     Route: 048
     Dates: start: 20231017, end: 20231023
  5. ACYCLOVIR [Concomitant]
     Active Substance: ACYCLOVIR
     Indication: Infection prophylaxis
     Dosage: ROUTE: PO
     Route: 048
     Dates: start: 20231017, end: 20231026
  6. ALLOPURINOL [Concomitant]
     Active Substance: ALLOPURINOL
     Indication: Blood uric acid increased
     Dosage: ROUTE: PO
     Route: 048
     Dates: start: 20231019, end: 20231026
  7. BACTRIM [Concomitant]
     Active Substance: SULFAMETHOXAZOLE\TRIMETHOPRIM
     Indication: Infection prophylaxis
     Dosage: ROUTE: PO?DOSE: (800-160)
     Route: 048
     Dates: start: 20231018, end: 20231026
  8. LEVOFLOXACIN [Concomitant]
     Active Substance: LEVOFLOXACIN
     Indication: Infection prophylaxis
     Dosage: ROUTE: PO
     Route: 048
     Dates: start: 20231017, end: 20231023
  9. ENOXAPARIN [Concomitant]
     Active Substance: ENOXAPARIN
     Indication: Thrombosis prophylaxis
     Route: 058
     Dates: start: 20231017, end: 20231026
  10. DEXAMETHASONE [Concomitant]
     Active Substance: DEXAMETHASONE
     Indication: Premedication
     Route: 048
     Dates: start: 20231017, end: 20231023
  11. DIPHENHYDRAMINE [Concomitant]
     Active Substance: DIPHENHYDRAMINE
     Indication: Premedication
     Dosage: ROUTE: PO
     Route: 048
     Dates: start: 20231017, end: 20231023

REACTIONS (1)
  - Cytokine release syndrome [Recovered/Resolved]

NARRATIVE: CASE EVENT DATE: 20231023
